FAERS Safety Report 23737373 (Version 1)
Quarter: 2024Q2

REPORT INFORMATION
  Report Type: Spontaneous
  Country: CN (occurrence: CN)
  Receive Date: 20240412
  Receipt Date: 20240412
  Transmission Date: 20240716
  Serious: Yes (Other)
  Sender: FDA-Public Use
  Company Number: CN-009507513-2404CHN006263

PATIENT
  Age: 88 Year
  Sex: Male
  Weight: 76.3 kg

DRUGS (5)
  1. LAGEVRIO [Suspect]
     Active Substance: MOLNUPIRAVIR
     Indication: COVID-19 treatment
     Dosage: 0.8 GRAM (4 CAPSULES), Q12H
     Route: 048
     Dates: start: 20240219, end: 20240224
  2. METHYLPREDNISOLONE SODIUM SUCCINATE [Suspect]
     Active Substance: METHYLPREDNISOLONE SODIUM SUCCINATE
     Indication: Pneumonia
     Dosage: 40 MILLIGRAM, QD
     Route: 041
     Dates: start: 20240221, end: 20240223
  3. METHYLPREDNISOLONE SODIUM SUCCINATE [Suspect]
     Active Substance: METHYLPREDNISOLONE SODIUM SUCCINATE
     Dosage: 20 MILLIGRAM, QD
     Route: 041
     Dates: start: 20240224, end: 20240226
  4. AVELOX [Suspect]
     Active Substance: MOXIFLOXACIN HYDROCHLORIDE
     Indication: Pneumonia
     Dosage: 0.4 GRAM, QD
     Route: 041
     Dates: start: 20240221, end: 20240228
  5. MEROPENEM [Suspect]
     Active Substance: MEROPENEM
     Indication: Pneumonia
     Dosage: 1 GRAM, Q12H
     Route: 041
     Dates: start: 20240221, end: 20240225

REACTIONS (2)
  - Pneumonia [Unknown]
  - Hepatic enzyme increased [Recovering/Resolving]

NARRATIVE: CASE EVENT DATE: 20240221
